FAERS Safety Report 16277706 (Version 1)
Quarter: 2019Q2

REPORT INFORMATION
  Report Type: Spontaneous
  Country: CH (occurrence: CH)
  Receive Date: 20190506
  Receipt Date: 20190506
  Transmission Date: 20190711
  Serious: Yes (Other)
  Sender: FDA-Public Use
  Company Number: CH-ASTRAZENECA-2019SE68400

PATIENT
  Sex: Female

DRUGS (3)
  1. OLAPARIB. [Suspect]
     Active Substance: OLAPARIB
     Indication: OVARIAN CANCER
     Dosage: 2 X 2 CAPSULES (50MG) PER DAY
     Route: 048
     Dates: start: 20180920
  2. OLAPARIB. [Suspect]
     Active Substance: OLAPARIB
     Indication: OVARIAN CANCER
     Dosage: 2 X 8 CAPSULES (50MG) PER DAY
     Route: 048
     Dates: start: 20180705, end: 20180816
  3. OLAPARIB. [Suspect]
     Active Substance: OLAPARIB
     Indication: OVARIAN CANCER
     Dosage: 2 X 4 CAPSULES (50MG) PER DAY
     Route: 048
     Dates: start: 20180816, end: 20180830

REACTIONS (3)
  - Haemoglobin decreased [Recovering/Resolving]
  - Malignant neoplasm progression [Unknown]
  - Incorrect dosage administered [Unknown]

NARRATIVE: CASE EVENT DATE: 20180816
